FAERS Safety Report 19854364 (Version 3)
Quarter: 2021Q4

REPORT INFORMATION
  Report Type: Report from Study
  Country: US (occurrence: US)
  Receive Date: 20210920
  Receipt Date: 20211112
  Transmission Date: 20220303
  Serious: No
  Sender: FDA-Public Use
  Company Number: NVSC2021US211716

PATIENT
  Sex: Female

DRUGS (3)
  1. PIQRAY [Suspect]
     Active Substance: ALPELISIB
     Indication: Breast cancer
     Dosage: 300 MG, QD
     Route: 048
     Dates: start: 20210825
  2. PIQRAY [Suspect]
     Active Substance: ALPELISIB
     Dosage: 250 MG
     Route: 048
     Dates: start: 20210825
  3. PIQRAY [Suspect]
     Active Substance: ALPELISIB
     Dosage: 200 MG
     Route: 048

REACTIONS (9)
  - Eating disorder [Recovering/Resolving]
  - Taste disorder [Recovering/Resolving]
  - Weight decreased [Unknown]
  - Fatigue [Recovering/Resolving]
  - Hyperglycaemia [Unknown]
  - Abdominal pain upper [Unknown]
  - Insomnia [Unknown]
  - Therapy change [Unknown]
  - Tumour marker decreased [Unknown]
